FAERS Safety Report 10222982 (Version 2)
Quarter: 2014Q2

REPORT INFORMATION
  Report Type: Report from Study
  Country: AT (occurrence: AT)
  Receive Date: 20140607
  Receipt Date: 20140607
  Transmission Date: 20141212
  Serious: Yes (Other)
  Sender: FDA-Public Use
  Company Number: PHHY2013AT133663

PATIENT
  Sex: 0

DRUGS (2)
  1. STI571 [Suspect]
     Indication: CHRONIC MYELOID LEUKAEMIA
     Dosage: 400 MG,
     Route: 048
     Dates: start: 2001
  2. TRITTICO [Concomitant]
     Dosage: 150 MG, UNK

REACTIONS (3)
  - Paronychia [Unknown]
  - Eyelid oedema [Unknown]
  - Conjunctival haemorrhage [Unknown]
